FAERS Safety Report 25230458 (Version 1)
Quarter: 2025Q2

REPORT INFORMATION
  Report Type: Spontaneous
  Country: US (occurrence: US)
  Receive Date: 20250423
  Receipt Date: 20250423
  Transmission Date: 20250716
  Serious: No
  Sender: SYMOGEN
  Company Number: US-PARTNER THERAPEUTICS-2024PTX00034

PATIENT
  Sex: Female

DRUGS (1)
  1. LEUKINE [Suspect]
     Active Substance: SARGRAMOSTIM
     Indication: Alveolar proteinosis

REACTIONS (2)
  - Bronchospasm [Unknown]
  - Off label use [Unknown]
